FAERS Safety Report 9640454 (Version 1)
Quarter: 2013Q4

REPORT INFORMATION
  Report Type: Spontaneous
  Country: ES (occurrence: None)
  Receive Date: 20131021
  Receipt Date: 20131021
  Transmission Date: 20140711
  Serious: Yes (Hospitalization, Other)
  Sender: FDA-Public Use
  Company Number: 2013-PEL-000002

PATIENT
  Age: 63 Year
  Sex: Male

DRUGS (2)
  1. SEVOFLURANE [Suspect]
     Indication: ANAESTHESIA
     Dosage: 6ML/H, INHIBILATION
     Route: 055
  2. SODIUM THIOPENTAL [Concomitant]

REACTIONS (1)
  - Intracranial pressure increased [None]
